FAERS Safety Report 24886986 (Version 1)
Quarter: 2025Q1

REPORT INFORMATION
  Report Type: Spontaneous
  Country: CN (occurrence: CN)
  Receive Date: 20250127
  Receipt Date: 20250127
  Transmission Date: 20250409
  Serious: Yes (Other)
  Sender: BEIGENE
  Company Number: CN-BEIGENE-BGN-2025-001155

PATIENT
  Age: 63 Year
  Weight: 68 kg

DRUGS (18)
  1. TISLELIZUMAB [Suspect]
     Active Substance: TISLELIZUMAB
     Indication: Nasopharyngeal cancer recurrent
  2. TISLELIZUMAB [Suspect]
     Active Substance: TISLELIZUMAB
     Route: 041
  3. TISLELIZUMAB [Suspect]
     Active Substance: TISLELIZUMAB
     Route: 041
  4. TISLELIZUMAB [Suspect]
     Active Substance: TISLELIZUMAB
  5. CISPLATIN [Suspect]
     Active Substance: CISPLATIN
     Indication: Nasopharyngeal cancer recurrent
  6. CISPLATIN [Suspect]
     Active Substance: CISPLATIN
  7. CISPLATIN [Suspect]
     Active Substance: CISPLATIN
  8. CISPLATIN [Suspect]
     Active Substance: CISPLATIN
  9. GEMCITABINE [Concomitant]
     Active Substance: GEMCITABINE
     Indication: Nasopharyngeal cancer recurrent
  10. GEMCITABINE [Concomitant]
     Active Substance: GEMCITABINE
  11. Netupitant and palonosetron hydrochloride [Concomitant]
     Indication: Vomiting
  12. Netupitant and palonosetron hydrochloride [Concomitant]
  13. DEXAMETHASONE [Concomitant]
     Active Substance: DEXAMETHASONE
     Indication: Vomiting
  14. DEXAMETHASONE [Concomitant]
     Active Substance: DEXAMETHASONE
  15. OMEPRAZOLE [Concomitant]
     Active Substance: OMEPRAZOLE
     Indication: Gastritis prophylaxis
  16. OMEPRAZOLE [Concomitant]
     Active Substance: OMEPRAZOLE
  17. PHOSPHOLIPID [Concomitant]
     Active Substance: PHOSPHOLIPID
     Indication: Liver disorder
  18. PHOSPHOLIPID [Concomitant]
     Active Substance: PHOSPHOLIPID

REACTIONS (7)
  - Myocardial necrosis marker increased [Recovering/Resolving]
  - Myocardial injury [Unknown]
  - Ventricular extrasystoles [Unknown]
  - Sinus tachycardia [Unknown]
  - Supraventricular extrasystoles [Unknown]
  - Asthenia [Unknown]
  - Decreased appetite [Unknown]
